FAERS Safety Report 6611263-6 (Version None)
Quarter: 2010Q1

REPORT INFORMATION
  Report Type: 
  Country: None (occurrence: None)
  Receive Date: 20100301
  Receipt Date: 20100301
  Transmission Date: 20100710
  Serious: Yes (Disabling)
  Sender: FDA-Public Use
  Company Number: None

PATIENT
  Sex: Female

DRUGS (1)
  1. MEROPENEM [Suspect]
     Indication: PSEUDOMONAS INFECTION
     Dates: start: 20100217, end: 20100223

REACTIONS (1)
  - EOSINOPHIL COUNT INCREASED [None]
